FAERS Safety Report 5012849-5 (Version None)
Quarter: 2006Q2

REPORT INFORMATION
  Report Type: 
  Country: None (occurrence: None)
  Receive Date: 20060530
  Receipt Date: 20060425
  Transmission Date: 20061013
  Serious: Yes (Death, Hospitalization)
  Sender: FDA-Public Use
  Company Number: US-BRISTOL-MYERS SQUIBB COMPANY-13355839

PATIENT
  Age: 48 Year
  Sex: Male
  Weight: 62 kg

DRUGS (6)
  1. ERBITUX [Suspect]
     Indication: OROPHARYNGEAL CANCER STAGE UNSPECIFIED
     Route: 042
     Dates: start: 20051215, end: 20051215
  2. HYDROCHLOROTHIAZIDE [Concomitant]
  3. HYDROCODONE [Concomitant]
  4. POTASSIUM [Concomitant]
  5. BC POWDER [Concomitant]
  6. DEXAMETHASONE TAB [Concomitant]
     Route: 048

REACTIONS (1)
  - MALIGNANT NEOPLASM PROGRESSION [None]
